FAERS Safety Report 10803093 (Version 2)
Quarter: 2015Q1

REPORT INFORMATION
  Report Type: Spontaneous
  Country: JP (occurrence: JP)
  Receive Date: 20150217
  Receipt Date: 20150306
  Transmission Date: 20150721
  Serious: Yes (Death, Hospitalization)
  Sender: FDA-Public Use
  Company Number: PHHY2014JP116339

PATIENT
  Age: 68 Year
  Sex: Female
  Weight: 42 kg

DRUGS (6)
  1. AROMASIN [Concomitant]
     Active Substance: EXEMESTANE
     Indication: METASTASES TO BONE
     Dosage: 25 MG, UNK
     Route: 048
     Dates: start: 20140728, end: 20140825
  2. FASLODEX [Concomitant]
     Active Substance: FULVESTRANT
     Indication: METASTASES TO LIVER
  3. FASLODEX [Concomitant]
     Active Substance: FULVESTRANT
     Indication: METASTASES TO BONE
     Dosage: 500 MG, UNK
     Route: 030
     Dates: start: 20121220, end: 20140717
  4. AFINITOR [Suspect]
     Active Substance: EVEROLIMUS
     Indication: BREAST CANCER
     Dosage: 10 MG, DAILY
     Route: 048
     Dates: start: 20140728, end: 20140825
  5. ZOMETA [Suspect]
     Active Substance: ZOLEDRONIC ACID
     Indication: METASTASES TO BONE
     Dosage: 4 MG, EACH TIME
     Route: 041
     Dates: start: 20120209, end: 20140612
  6. AROMASIN [Concomitant]
     Active Substance: EXEMESTANE
     Indication: METASTASES TO LIVER

REACTIONS (9)
  - Renal disorder [Fatal]
  - Decreased appetite [Unknown]
  - Haemoglobin decreased [Unknown]
  - Metastases to liver [Fatal]
  - Pleural effusion [Unknown]
  - Pyrexia [Not Recovered/Not Resolved]
  - Diarrhoea [Fatal]
  - General physical health deterioration [Fatal]
  - Malignant neoplasm progression [Fatal]

NARRATIVE: CASE EVENT DATE: 20130214
